FAERS Safety Report 4589338-5 (Version None)
Quarter: 2005Q1

REPORT INFORMATION
  Report Type: 
  Country: None (occurrence: None)
  Receive Date: 20050216
  Receipt Date: 20050204
  Transmission Date: 20050727
  Serious: Yes (Life-Threatening)
  Sender: FDA-Public Use
  Company Number: 2005-BP-01728RO

PATIENT
  Age: 58 Year
  Sex: Female

DRUGS (8)
  1. LEUCOVORIN CALCIUM [Suspect]
     Indication: COLON CANCER
     Dosage: SEE IMAGE
     Route: 048
     Dates: start: 20040816, end: 20040913
  2. LEUCOVORIN CALCIUM [Suspect]
     Indication: COLON CANCER
     Dosage: SEE IMAGE
     Route: 048
     Dates: start: 20041020
  3. UFT [Suspect]
     Indication: COLON CANCER
     Dosage: SEE IMAGE
     Route: 048
     Dates: start: 20040816, end: 20040913
  4. UFT [Suspect]
     Indication: COLON CANCER
     Dosage: SEE IMAGE
     Route: 048
     Dates: start: 20041020
  5. PREDNISOLONE [Concomitant]
  6. ROXATIDINE ACETATE HCL [Concomitant]
  7. ALFAROL (ALFACALCIDOL) [Concomitant]
  8. URSO (DEOXYCHOLIC ACID) [Concomitant]

REACTIONS (1)
  - HEPATITIS [None]
